FAERS Safety Report 8823538 (Version 1)
Quarter: 2012Q4

REPORT INFORMATION
  Report Type: 
  Country: JM (occurrence: JM)
  Receive Date: 20121003
  Receipt Date: 20121003
  Transmission Date: 20130627
  Serious: Yes (Death)
  Sender: FDA-Public Use
  Company Number: JM-B.I. PHARMACEUTICALS,INC./RIDGEFIELD-2012-CN-02023CN

PATIENT
  Age: 75 Year
  Sex: Male

DRUGS (2)
  1. SPIRIVA [Suspect]
  2. HYPERTENSION MEDICATION [Concomitant]
     Indication: HYPERTENSION

REACTIONS (1)
  - Death [Fatal]
